FAERS Safety Report 9245582 (Version 2)
Quarter: 2013Q2

REPORT INFORMATION
  Report Type: Spontaneous
  Country: US (occurrence: US)
  Receive Date: 20130422
  Receipt Date: 20130502
  Transmission Date: 20140414
  Serious: No
  Sender: FDA-Public Use
  Company Number: US-ROXANE LABORATORIES, INC.-2013-RO-00533RO

PATIENT
  Age: 53 Year
  Sex: Female

DRUGS (2)
  1. ROXICET [Suspect]
     Indication: PAIN
     Route: 048
  2. ROXICET [Suspect]
     Indication: OESOPHAGEAL SPASM

REACTIONS (2)
  - Retching [Not Recovered/Not Resolved]
  - Product quality issue [Not Recovered/Not Resolved]
